FAERS Safety Report 9502828 (Version 2)
Quarter: 2013Q3

REPORT INFORMATION
  Report Type: Spontaneous
  Country: GB (occurrence: GB)
  Receive Date: 20130906
  Receipt Date: 20130906
  Transmission Date: 20140515
  Serious: Yes (Congenital Anomaly, Other)
  Sender: FDA-Public Use
  Company Number: GB-JNJFOC-JAUK3226

PATIENT
  Sex: 0

DRUGS (1)
  1. MEBENDAZOLE [Suspect]
     Indication: PRODUCT USED FOR UNKNOWN INDICATION
     Route: 064
     Dates: start: 19851014, end: 19851014

REACTIONS (2)
  - Foetal exposure during pregnancy [Recovered/Resolved]
  - Fallot^s tetralogy [Unknown]
